FAERS Safety Report 4899545-X (Version None)
Quarter: 2006Q1

REPORT INFORMATION
  Report Type: 
  Country: None (occurrence: None)
  Receive Date: 20060131
  Receipt Date: 20060116
  Transmission Date: 20060701
  Serious: Yes (Congenital Anomaly)
  Sender: FDA-Public Use
  Company Number: 2006S1000018

PATIENT

DRUGS (4)
  1. SORIATANE [Suspect]
     Dosage: TRPL
  2. BETAMETHASONE VALERATE [Suspect]
     Dosage: TRPL
  3. DESONIDE [Suspect]
     Dosage: TRPL
  4. DERMOVAL                  (CLOBETASOL PROPIONATE) [Suspect]
     Dosage: TRPL

REACTIONS (6)
  - ABORTION INDUCED [None]
  - CONGENITAL AORTIC ANOMALY [None]
  - DRUG EXPOSURE DURING PREGNANCY [None]
  - HEART DISEASE CONGENITAL [None]
  - PREGNANCY [None]
  - VENTRICULAR HYPOPLASIA [None]
